FAERS Safety Report 5197941-7 (Version None)
Quarter: 2007Q1

REPORT INFORMATION
  Report Type: 
  Country: None (occurrence: None)
  Receive Date: 20070104
  Receipt Date: 20061226
  Transmission Date: 20070707
  Serious: Yes (Hospitalization)
  Sender: FDA-Public Use
  Company Number: JP-JNJFOC-20061201113

PATIENT
  Sex: Female
  Weight: 49 kg

DRUGS (9)
  1. REMICADE [Suspect]
     Route: 042
  2. REMICADE [Suspect]
     Route: 042
  3. REMICADE [Suspect]
     Indication: RHEUMATOID ARTHRITIS
     Route: 042
  4. RHEUMATREX [Suspect]
     Indication: RHEUMATOID ARTHRITIS
     Route: 048
  5. MEDROL [Concomitant]
     Indication: RHEUMATOID ARTHRITIS
     Route: 048
  6. ICROL [Concomitant]
     Indication: GASTRITIS PROPHYLAXIS
     Route: 048
  7. KLARICID [Concomitant]
     Indication: INFECTION PROPHYLAXIS
     Route: 048
  8. FOLIAMIN [Concomitant]
     Indication: PROPHYLAXIS
     Route: 048
  9. CALCITAMIN [Concomitant]
     Indication: OSTEOPOROSIS
     Dosage: DOSE: 0.5 RG DAILY
     Route: 048

REACTIONS (3)
  - LIVER DISORDER [None]
  - PNEUMOCYSTIS JIROVECI PNEUMONIA [None]
  - RASH [None]
